FAERS Safety Report 9161114 (Version 1)
Quarter: 2013Q1

REPORT INFORMATION
  Report Type: Spontaneous
  Country: US (occurrence: US)
  Receive Date: 20130313
  Receipt Date: 20130313
  Transmission Date: 20140127
  Serious: Yes (Life-Threatening, Hospitalization, Other)
  Sender: FDA-Public Use
  Company Number: CHPA2013US004310

PATIENT
  Age: 65 Year
  Sex: Male

DRUGS (4)
  1. MAALOX ANTACID LIQUID - UNKNOWN [Suspect]
     Indication: DYSPEPSIA
     Dosage: UNK, UNK
     Route: 048
  2. MAALOX ANTACID/ANTIGAS MAX QDTABS ASST [Suspect]
     Indication: DYSPEPSIA
     Dosage: UNK, UNK
     Route: 065
  3. RANITIDINE [Concomitant]
     Indication: DYSPEPSIA
     Dosage: 1 DF, BID
  4. RANITIDINE [Concomitant]
     Indication: GASTROOESOPHAGEAL REFLUX DISEASE

REACTIONS (9)
  - Carotid artery occlusion [Unknown]
  - Vascular rupture [Recovered/Resolved]
  - Haemoptysis [Recovered/Resolved]
  - Coronary artery insufficiency [Unknown]
  - Haemorrhage [Recovered/Resolved]
  - Collateral circulation [Unknown]
  - Weight decreased [Recovered/Resolved]
  - Abdominal discomfort [Not Recovered/Not Resolved]
  - Dyspepsia [Not Recovered/Not Resolved]
